FAERS Safety Report 23736744 (Version 1)
Quarter: 2024Q2

REPORT INFORMATION
  Report Type: Spontaneous
  Country: US (occurrence: US)
  Receive Date: 20240412
  Receipt Date: 20240412
  Transmission Date: 20240716
  Serious: No
  Sender: FDA-Public Use
  Company Number: US-PFIZER INC-202400084483

PATIENT
  Age: 55 Year
  Sex: Female

DRUGS (1)
  1. XELJANZ [Suspect]
     Active Substance: TOFACITINIB CITRATE
     Indication: Rheumatoid arthritis
     Dosage: 5 MG, 2X/DAY ((1 TABLET IN THE MORNING AND 1 TABLET AT NIGHT)

REACTIONS (2)
  - Product dose omission issue [Not Recovered/Not Resolved]
  - Sensitivity to weather change [Not Recovered/Not Resolved]

NARRATIVE: CASE EVENT DATE: 20240401
